FAERS Safety Report 5121732-6 (Version None)
Quarter: 2006Q4

REPORT INFORMATION
  Report Type: 
  Country: None (occurrence: None)
  Receive Date: 20061003
  Receipt Date: 20060929
  Transmission Date: 20070319
  Serious: Yes (Other)
  Sender: FDA-Public Use
  Company Number: 225747

PATIENT
  Sex: Male

DRUGS (1)
  1. MABTHERA(RITUXIMAB) CONC FOR SOLUTION FOR INFUSION [Suspect]
     Indication: IDIOPATHIC THROMBOCYTOPENIC PURPURA
     Dosage: INTRAVENOUS
     Route: 042
     Dates: start: 20050101, end: 20050101

REACTIONS (2)
  - MYALGIA [None]
  - NEUROPATHY PERIPHERAL [None]
